FAERS Safety Report 8622187-7 (Version None)
Quarter: 2012Q3

REPORT INFORMATION
  Report Type: 
  Country: None (occurrence: None)
  Receive Date: 20120826
  Receipt Date: 20120815
  Transmission Date: 20120928
  Serious: Yes (Other)
  Sender: FDA-Public Use
  Company Number: BR-BRISTOL-MYERS SQUIBB COMPANY-16874604

PATIENT
  Age: 34 Year
  Sex: Female
  Weight: 62 kg

DRUGS (7)
  1. FENOFIBRATE [Concomitant]
     Indication: BLOOD TRIGLYCERIDES
     Dosage: TABS. FREQUENCY-1 TAB AT NIGHT FORMULATION-FENOFIBRATE 250MG TABS
     Route: 048
     Dates: start: 20070101
  2. SINVASCOR [Concomitant]
     Indication: HYPERCHOLESTEROLAEMIA
     Dosage: FORMULATION-SINVASCOR 40MG TABS FREQUENCY- 1TAB;QD
     Route: 048
     Dates: start: 20070101
  3. LEVOTHYROXINE SODIUM [Concomitant]
     Indication: HYPOTHYROIDISM
     Dosage: FORMULATION-PURAN T4 112MCG TABS,FREQUENCY- 1TAB;QD
     Route: 048
     Dates: start: 19960101
  4. PRISTIQ [Concomitant]
     Indication: DEPRESSION
     Dosage: 1 DF = PRISTIQ 50MG TABS,FREQUENCY-1 TAB(EVERY MRNG)
     Route: 048
     Dates: start: 20120601
  5. IRBESARTAN [Suspect]
     Indication: HYPERTENSION
     Dosage: FREQUENCY-EVERY MRNG THERAPY DURATION :2002-UNK ,14AUG2012-ONGNG
     Route: 048
     Dates: start: 20020101
  6. HUMALOG [Concomitant]
     Indication: DIABETES MELLITUS
     Dosage: FORMULATION-HUMALOG 300IU
     Route: 058
     Dates: start: 19960101
  7. LANTUS [Concomitant]
     Indication: DIABETES MELLITUS
     Dosage: FORMULATION-LANTUS 300IU. FREQUENCY-QD AT 6PM
     Route: 058
     Dates: start: 20000101

REACTIONS (4)
  - HEADACHE [None]
  - HYPERTENSIVE CRISIS [None]
  - NAUSEA [None]
  - NECK PAIN [None]
